FAERS Safety Report 22877178 (Version 8)
Quarter: 2025Q2

REPORT INFORMATION
  Report Type: Spontaneous
  Country: US (occurrence: US)
  Receive Date: 20230829
  Receipt Date: 20250427
  Transmission Date: 20250717
  Serious: Yes (Other)
  Sender: SANOFI AVENTIS
  Company Number: US-SA-SAC20230823000559

PATIENT
  Age: 4 Year
  Sex: Male

DRUGS (5)
  1. DUPIXENT [Suspect]
     Active Substance: DUPILUMAB
     Indication: Dermatitis allergic
     Dosage: 300 MG, Q4W
     Route: 058
     Dates: start: 20230809
  2. DUPIXENT [Suspect]
     Active Substance: DUPILUMAB
     Indication: Eczema
  3. DUPIXENT [Suspect]
     Active Substance: DUPILUMAB
     Indication: Asthma
  4. DUPIXENT [Suspect]
     Active Substance: DUPILUMAB
     Indication: Eosinophilic oesophagitis
  5. DUPIXENT [Suspect]
     Active Substance: DUPILUMAB
     Indication: Dermatitis atopic

REACTIONS (20)
  - Croup infectious [Recovered/Resolved]
  - Eyelid skin dryness [Not Recovered/Not Resolved]
  - Ear infection [Unknown]
  - Photosensitivity reaction [Unknown]
  - Emotional distress [Unknown]
  - Skin fissures [Unknown]
  - Condition aggravated [Unknown]
  - Dry skin [Not Recovered/Not Resolved]
  - Irritability [Not Recovered/Not Resolved]
  - Affective disorder [Not Recovered/Not Resolved]
  - Erythema of eyelid [Not Recovered/Not Resolved]
  - Eyelids pruritus [Unknown]
  - Skin exfoliation [Unknown]
  - Erythema [Unknown]
  - Pruritus [Unknown]
  - Nasopharyngitis [Unknown]
  - Ocular hyperaemia [Recovered/Resolved]
  - Conjunctivitis [Unknown]
  - Asthma [Unknown]
  - Inappropriate schedule of product administration [Unknown]

NARRATIVE: CASE EVENT DATE: 20230101
